FAERS Safety Report 6673805-4 (Version None)
Quarter: 2010Q2

REPORT INFORMATION
  Report Type: 
  Country: None (occurrence: None)
  Receive Date: 20100407
  Receipt Date: 20100325
  Transmission Date: 20101027
  Serious: No
  Sender: FDA-Public Use
  Company Number: B0644759A

PATIENT
  Age: 58 Year
  Sex: Female

DRUGS (1)
  1. FONDAPARINUX SODIUM [Suspect]
     Dosage: INJECTION
     Dates: start: 20090619

REACTIONS (6)
  - ANURIA [None]
  - HAEMOGLOBIN DECREASED [None]
  - PERIRENAL HAEMATOMA [None]
  - RENAL CORTICAL NECROSIS [None]
  - RENAL IMPAIRMENT [None]
  - RENAL VASCULITIS [None]
